FAERS Safety Report 16304239 (Version 6)
Quarter: 2020Q2

REPORT INFORMATION
  Report Type: Spontaneous
  Country: FR (occurrence: FR)
  Receive Date: 20190513
  Receipt Date: 20200506
  Transmission Date: 20200713
  Serious: Yes (Death, Life-Threatening, Other)
  Sender: FDA-Public Use
  Company Number: FR-GLAXOSMITHKLINE-FR2019GSK083436

PATIENT

DRUGS (12)
  1. LORMETAZEPAM [Suspect]
     Active Substance: LORMETAZEPAM
     Indication: PRODUCT USED FOR UNKNOWN INDICATION
     Dosage: UNK (2 BLISTER)
     Route: 065
  2. NICOPATCH [Suspect]
     Active Substance: NICOTINE
     Indication: COMPLETED SUICIDE
     Dosage: UNK
     Route: 062
     Dates: start: 2017
  3. CANNABIS [Concomitant]
     Active Substance: CANNABIS SATIVA SUBSP. INDICA TOP
     Indication: PRODUCT USED FOR UNKNOWN INDICATION
     Dosage: UNK
  4. BUPRENORPHINE HCL SUBLINGUAL TABLET [Suspect]
     Active Substance: BUPRENORPHINE HYDROCHLORIDE
     Indication: PRODUCT USED FOR UNKNOWN INDICATION
     Dosage: UNK
     Route: 060
  5. NICOTINE. [Suspect]
     Active Substance: NICOTINE
     Indication: COMPLETED SUICIDE
     Dosage: UNK, 1.5 MG CAPSULES, 5 BLISTERS; UNKNOWN
     Route: 065
  6. TERCIAN [Suspect]
     Active Substance: CYAMEMAZINE
     Indication: PRODUCT USED FOR UNKNOWN INDICATION
     Dosage: UNK (14 BLISTERS)
     Route: 065
  7. NORDAZEPAM [Suspect]
     Active Substance: NORDAZEPAM
     Indication: PRODUCT USED FOR UNKNOWN INDICATION
     Dosage: UNK
     Route: 065
  8. OXAZEPAM. [Suspect]
     Active Substance: OXAZEPAM
     Indication: PRODUCT USED FOR UNKNOWN INDICATION
     Dosage: UNK
     Route: 065
  9. NICOTINE. [Suspect]
     Active Substance: NICOTINE
     Indication: DRUG DEPENDENCE
     Dosage: 21 MG, UNK (21 MG, PATCHES)
     Route: 062
  10. NICOTINE. [Suspect]
     Active Substance: NICOTINE
     Dosage: AS NECESSARY, TRANSDERMAL PATCHES, 2 DOSAGE FORM
     Route: 062
  11. TRANXENE [Concomitant]
     Active Substance: CLORAZEPATE DIPOTASSIUM
     Indication: PRODUCT USED FOR UNKNOWN INDICATION
     Dosage: UNK
  12. NICOPASS [Suspect]
     Active Substance: NICOTINE
     Indication: PRODUCT USED FOR UNKNOWN INDICATION
     Dosage: UNK, 5 EMPTY BLISTERS OF NICOTINE TABLETS (NICOPASS 1.5 MG)

REACTIONS (20)
  - Visceral congestion [Fatal]
  - Arteriosclerosis coronary artery [Unknown]
  - Muscle rigidity [Unknown]
  - Tobacco poisoning [Fatal]
  - Intentional overdose [Fatal]
  - Conjunctival hyperaemia [Unknown]
  - Haemorrhage [Unknown]
  - Toxicity to various agents [Fatal]
  - Asphyxia [Fatal]
  - Drug abuse [Fatal]
  - Diffuse alveolar damage [Fatal]
  - Scar [Unknown]
  - Pulmonary congestion [Unknown]
  - Secretion discharge [Unknown]
  - Induration [Fatal]
  - Petechiae [Fatal]
  - Cyanosis [Unknown]
  - Erythema [Unknown]
  - Pulmonary oedema [Unknown]
  - Overdose [Unknown]

NARRATIVE: CASE EVENT DATE: 2017
